FAERS Safety Report 5146490-0 (Version None)
Quarter: 2006Q4

REPORT INFORMATION
  Report Type: 
  Country: None (occurrence: None)
  Receive Date: 20061102
  Receipt Date: 20061025
  Transmission Date: 20070319
  Serious: Yes (Other)
  Sender: FDA-Public Use
  Company Number: 2006130229

PATIENT
  Age: 34 Year
  Sex: Female

DRUGS (1)
  1. LUBRIDERM DAILY  MOISTURE WITH SPF 15 (OXYGENZONE, ETHYLHEXYL P-METHOX [Suspect]
     Indication: DRY SKIN
     Dosage: LIBERALLY ONCE, TOPICAL
     Route: 061
     Dates: start: 20061024, end: 20061024

REACTIONS (1)
  - APPLICATION SITE RASH [None]
